FAERS Safety Report 6401049-X (Version None)
Quarter: 2009Q4

REPORT INFORMATION
  Report Type: 
  Country: None (occurrence: None)
  Receive Date: 20091013
  Receipt Date: 20091013
  Transmission Date: 20100525
  Serious: Yes (Other)
  Sender: FDA-Public Use
  Company Number: None

PATIENT

DRUGS (2)
  1. THYROID TAB [Suspect]
  2. THYROID TAB [Suspect]
     Dosage: AND ALL OTHERS, 15 MG THROUGH 180

REACTIONS (1)
  - NO ADVERSE EVENT [None]
